FAERS Safety Report 4682147-8 (Version None)
Quarter: 2005Q2

REPORT INFORMATION
  Report Type: 
  Country: None (occurrence: None)
  Receive Date: 20050603
  Receipt Date: 20050603
  Transmission Date: 20051028
  Serious: Yes (Death)
  Sender: FDA-Public Use
  Company Number: None

PATIENT
  Age: 21 Year
  Sex: Female
  Weight: 68.4932 kg

DRUGS (2)
  1. CITALOPRAM [Suspect]
     Indication: DEPRESSION
     Dosage: 3 AT NIGHT, DAYS BEFORE DEATH
  2. PSEUDOPHEDRINE [Suspect]
     Indication: INFLUENZA
     Dosage: OVER THE COUNTER, MANY DAYS BEFORE DEATH

REACTIONS (2)
  - COMPLETED SUICIDE [None]
  - DRUG DOSE OMISSION [None]
